FAERS Safety Report 8104738-4 (Version None)
Quarter: 2012Q1

REPORT INFORMATION
  Report Type: 
  Country: None (occurrence: None)
  Receive Date: 20120130
  Receipt Date: 20120124
  Transmission Date: 20120608
  Serious: Yes (Hospitalization)
  Sender: FDA-Public Use
  Company Number: US-PFIZER INC-2011274091

PATIENT
  Age: 69 Year
  Sex: Male

DRUGS (6)
  1. DIPHENHYDRAMINE [Concomitant]
     Dosage: 25 MG, UNK
     Route: 048
  2. ONDANSETRON [Concomitant]
     Dosage: 24 MG, UNK
     Route: 042
  3. CARBOPLATIN [Suspect]
     Indication: SMALL CELL LUNG CANCER STAGE UNSPECIFIED
     Dosage: 370 MG, OVER 30 MINUTES
  4. ALLOPURINOL [Concomitant]
     Dosage: 300 MG, UNK
     Route: 048
  5. DEXAMETHASONE [Concomitant]
     Dosage: 12 MG, UNK
     Route: 042
  6. RANITIDINE [Concomitant]
     Dosage: 50 MG, UNK
     Route: 042

REACTIONS (1)
  - ATRIAL FLUTTER [None]
